FAERS Safety Report 9462171 (Version 4)
Quarter: 2013Q4

REPORT INFORMATION
  Report Type: Report from Study
  Country: CA (occurrence: CA)
  Receive Date: 20130816
  Receipt Date: 20131101
  Transmission Date: 20140711
  Serious: Yes (Hospitalization)
  Sender: FDA-Public Use
  Company Number: PHHY2013CA087261

PATIENT
  Age: 41 Year
  Sex: Female

DRUGS (11)
  1. GILENYA [Suspect]
     Indication: MULTIPLE SCLEROSIS
     Route: 048
     Dates: start: 20130116
  2. CELEBREX [Concomitant]
     Dosage: 100 MG, BID
  3. HEPARIN [Concomitant]
     Dosage: 5000 U, BID
     Route: 058
  4. LYRICA [Concomitant]
     Dosage: 75 MG, TID
  5. TOPAMAX [Concomitant]
     Indication: MIGRAINE
     Dosage: 50 MG, BID
  6. TRAMACET [Concomitant]
     Dosage: 1 DF, PRN
  7. GRAVOL [Concomitant]
     Dosage: 1 DF, PRN
  8. COLACE [Concomitant]
     Dosage: 1 DF, PRN
  9. MAXALT [Concomitant]
     Dosage: 1 DF, PRN
  10. VENTOLIN                           /00942701/ [Concomitant]
  11. RESTORIL [Concomitant]
     Dosage: 1 DF, PRN

REACTIONS (19)
  - Multiple sclerosis relapse [Recovering/Resolving]
  - Nystagmus [Unknown]
  - Ophthalmoplegia [Unknown]
  - Central nervous system lesion [Unknown]
  - Ataxia [Unknown]
  - Oscillopsia [Unknown]
  - Hemiparesis [Unknown]
  - Expanded disability status scale score decreased [Unknown]
  - Paraesthesia [Unknown]
  - Sensation of heaviness [Unknown]
  - Gait disturbance [Unknown]
  - Dysarthria [Unknown]
  - Hemianopia [Unknown]
  - Vertigo [Unknown]
  - Aphonia [Unknown]
  - Sensory loss [Unknown]
  - Hypoaesthesia [Unknown]
  - Urinary tract infection [Unknown]
  - Pollakiuria [Unknown]
